FAERS Safety Report 6091471-6 (Version None)
Quarter: 2009Q1

REPORT INFORMATION
  Report Type: 
  Country: None (occurrence: None)
  Receive Date: 20090225
  Receipt Date: 20090220
  Transmission Date: 20090719
  Serious: Yes (Hospitalization)
  Sender: FDA-Public Use
  Company Number: US-BAYER-200829831NA

PATIENT
  Age: 37 Year
  Sex: Female
  Weight: 75 kg

DRUGS (3)
  1. YASMIN [Suspect]
     Indication: UTERINE LEIOMYOMA
     Route: 048
     Dates: start: 20051023, end: 20060216
  2. SYNTHROID [Concomitant]
     Indication: DRUG USE FOR UNKNOWN INDICATION
  3. LEVOTHYROXINE SODIUM [Concomitant]
     Indication: DRUG USE FOR UNKNOWN INDICATION

REACTIONS (5)
  - DYSPNOEA [None]
  - NON-CARDIAC CHEST PAIN [None]
  - PAIN IN EXTREMITY [None]
  - PULMONARY EMBOLISM [None]
  - VENA CAVA THROMBOSIS [None]
